FAERS Safety Report 7505843-3 (Version None)
Quarter: 2011Q2

REPORT INFORMATION
  Report Type: 
  Country: None (occurrence: None)
  Receive Date: 20110526
  Receipt Date: 20110516
  Transmission Date: 20111010
  Serious: Yes (Hospitalization, Other)
  Sender: FDA-Public Use
  Company Number: US-ELI_LILLY_AND_COMPANY-US201003006511

PATIENT
  Sex: Female

DRUGS (5)
  1. SYNTHROID [Concomitant]
     Dosage: 100 UG, DAILY (1/D)
  2. FORTEO [Suspect]
     Indication: OSTEOPOROSIS
     Dosage: 20 UG, DAILY (1/D)
  3. FERROUS SULFATE TAB [Concomitant]
     Dosage: 325 MG, 2/D
  4. NAMENDA [Concomitant]
     Dosage: 5 MG, 2/D
  5. ARICEPT [Concomitant]
     Dosage: 10 MG, DAILY (1/D)

REACTIONS (9)
  - URINARY TRACT INFECTION [None]
  - HAEMATOMA [None]
  - FACIAL BONES FRACTURE [None]
  - ANAEMIA [None]
  - GASTRIC ULCER HAEMORRHAGE [None]
  - ASTHENIA [None]
  - BALANCE DISORDER [None]
  - FALL [None]
  - PRESYNCOPE [None]
